FAERS Safety Report 12533061 (Version 1)
Quarter: 2016Q3

REPORT INFORMATION
  Report Type: Spontaneous
  Country: US (occurrence: US)
  Receive Date: 20160706
  Receipt Date: 20160706
  Transmission Date: 20161109
  Serious: No
  Sender: FDA-Public Use
  Company Number: US-PURDUE-USA-2015-0126627

PATIENT
  Sex: Female

DRUGS (6)
  1. BUTRANS [Suspect]
     Active Substance: BUPRENORPHINE
     Dosage: 15 MCG/HR, WEEKLY
     Route: 062
  2. BUTRANS [Suspect]
     Active Substance: BUPRENORPHINE
     Dosage: 20 MCG/HR, WEEKLY
     Route: 062
  3. BUTRANS [Suspect]
     Active Substance: BUPRENORPHINE
     Dosage: 10 MCG/HR, WEEKLY
     Route: 062
  4. BUTRANS [Suspect]
     Active Substance: BUPRENORPHINE
     Indication: PAIN
     Dosage: 20 MCG/HR, WEEKLY
     Route: 062
  5. VALIUM [Concomitant]
     Active Substance: DIAZEPAM
     Indication: TREMOR
     Dosage: 2 MG, PRN
     Route: 048
  6. SALONPAS                           /01386301/ [Concomitant]
     Indication: PAIN
     Route: 062

REACTIONS (6)
  - Feeling abnormal [Unknown]
  - Insomnia [Unknown]
  - Product adhesion issue [Unknown]
  - Pruritus [Unknown]
  - Inadequate analgesia [Unknown]
  - Fatigue [Unknown]
